FAERS Safety Report 4688288-3 (Version None)
Quarter: 2005Q2

REPORT INFORMATION
  Report Type: 
  Country: None (occurrence: None)
  Receive Date: 20050610
  Receipt Date: 20050407
  Transmission Date: 20051028
  Serious: Yes (Hospitalization, Disabling, Other)
  Sender: FDA-Public Use
  Company Number: US-MERCK-0504USA00997

PATIENT
  Age: 48 Year
  Sex: Male
  Weight: 111 kg

DRUGS (4)
  1. VIOXX [Suspect]
     Indication: ARTHRITIS
     Route: 048
     Dates: start: 20010301, end: 20010901
  2. TRAZODONE HYDROCHLORIDE [Concomitant]
     Route: 065
  3. AUGMENTIN '125' [Concomitant]
     Route: 065
  4. ASPIRIN [Concomitant]
     Route: 065
     Dates: start: 20010501

REACTIONS (13)
  - AFFECTIVE DISORDER [None]
  - AMNESIA [None]
  - ATHEROSCLEROSIS [None]
  - BLOOD CHOLESTEROL INCREASED [None]
  - BLOOD TRIGLYCERIDES INCREASED [None]
  - CAROTID ARTERY STENOSIS [None]
  - CEREBROVASCULAR ACCIDENT [None]
  - COGNITIVE DISORDER [None]
  - CONVULSION [None]
  - DEPRESSION [None]
  - DIABETES MELLITUS [None]
  - HYPERTENSION [None]
  - TRANSIENT ISCHAEMIC ATTACK [None]
